FAERS Safety Report 9481899 (Version 1)
Quarter: 2013Q3

REPORT INFORMATION
  Report Type: Spontaneous
  Country: US (occurrence: US)
  Receive Date: 20130828
  Receipt Date: 20130828
  Transmission Date: 20140515
  Serious: Yes (Other)
  Sender: FDA-Public Use
  Company Number: US-BRISTOL-MYERS SQUIBB COMPANY-19205616

PATIENT
  Age: 90 Year
  Sex: Female
  Weight: 61.22 kg

DRUGS (6)
  1. COUMADIN [Suspect]
     Indication: ATRIAL FIBRILLATION
     Dosage: 1DF:1
  2. ZOCOR [Concomitant]
  3. SYNTHROID [Concomitant]
  4. ATACAND [Concomitant]
  5. PROCARDIA [Concomitant]
  6. XANAX [Concomitant]

REACTIONS (2)
  - Cerebrovascular accident [Unknown]
  - International normalised ratio decreased [Unknown]
